FAERS Safety Report 4839334-5 (Version None)
Quarter: 2005Q4

REPORT INFORMATION
  Report Type: 
  Country: None (occurrence: None)
  Receive Date: 20051129
  Receipt Date: 20050113
  Transmission Date: 20060501
  Serious: No
  Sender: FDA-Public Use
  Company Number: US-GLAXOSMITHKLINE-A0540532A

PATIENT
  Age: 79 Year
  Sex: Male

DRUGS (3)
  1. WELLBUTRIN SR [Suspect]
     Indication: DEPRESSION
     Dosage: 200MG TWICE PER DAY
     Route: 048
     Dates: start: 19990101
  2. PROSCAR [Concomitant]
  3. ANDROGEL [Concomitant]

REACTIONS (4)
  - ASTHENIA [None]
  - DEPRESSION [None]
  - DRUG INEFFECTIVE [None]
  - MENTAL STATUS CHANGES [None]
